FAERS Safety Report 10676753 (Version 2)
Quarter: 2015Q1

REPORT INFORMATION
  Report Type: Spontaneous
  Country: US (occurrence: US)
  Receive Date: 20141226
  Receipt Date: 20150105
  Transmission Date: 20150720
  Serious: Yes (Other)
  Sender: FDA-Public Use
  Company Number: US-JNJFOC-20141211388

PATIENT
  Age: 40 Year
  Sex: Male
  Weight: 83.92 kg

DRUGS (2)
  1. MENS ROGAINE EXTRA STRENGTH [Suspect]
     Active Substance: MINOXIDIL
     Indication: HAIR GROWTH ABNORMAL
     Dosage: 5%
     Route: 061
  2. MENS ROGAINE EXTRA STRENGTH [Suspect]
     Active Substance: MINOXIDIL
     Route: 061

REACTIONS (10)
  - Weight increased [Unknown]
  - Cerebrovascular accident [Unknown]
  - Eye swelling [Unknown]
  - Hypoaesthesia [Unknown]
  - Skin atrophy [Not Recovered/Not Resolved]
  - Vein disorder [Unknown]
  - Alopecia [Unknown]
  - Collagen disorder [Unknown]
  - Hair texture abnormal [Unknown]
  - Heart rate increased [Unknown]
